FAERS Safety Report 23148965 (Version 1)
Quarter: 2023Q4

REPORT INFORMATION
  Report Type: Report from Study
  Country: US (occurrence: US)
  Receive Date: 20231106
  Receipt Date: 20231106
  Transmission Date: 20240109
  Serious: Yes (Other)
  Sender: FDA-Public Use
  Company Number: US-OTSUKA-2023_023338

PATIENT
  Sex: Male

DRUGS (1)
  1. TOLVAPTAN [Suspect]
     Active Substance: TOLVAPTAN
     Indication: Congenital cystic kidney disease
     Dosage: UNK
     Route: 065
     Dates: start: 20230819

REACTIONS (5)
  - In vitro fertilisation [Unknown]
  - Infertility [Unknown]
  - Sperm concentration decreased [Unknown]
  - Polyuria [Unknown]
  - Thirst [Unknown]

NARRATIVE: CASE EVENT DATE: 20230901
